FAERS Safety Report 9450777 (Version 1)
Quarter: 2013Q3

REPORT INFORMATION
  Report Type: Spontaneous
  Country: US (occurrence: US)
  Receive Date: 20130809
  Receipt Date: 20130809
  Transmission Date: 20140515
  Serious: No
  Sender: FDA-Public Use
  Company Number: US-AMGEN-USASP2013028713

PATIENT
  Age: 17 Year
  Sex: Female

DRUGS (4)
  1. NEUPOGEN [Suspect]
     Indication: PRODUCT USED FOR UNKNOWN INDICATION
     Dosage: UNK
  2. BLEOMYCIN [Concomitant]
     Indication: OVARIAN CANCER
     Dosage: UNK
  3. ETOPOSIDE [Concomitant]
     Indication: OVARIAN CANCER
     Dosage: UNK
  4. CISPLATIN [Concomitant]
     Indication: OVARIAN CANCER
     Dosage: UNK

REACTIONS (1)
  - Hepatic enzyme increased [Recovered/Resolved]
